FAERS Safety Report 11411752 (Version 3)
Quarter: 2018Q4

REPORT INFORMATION
  Report Type: Spontaneous
  Country: JP (occurrence: JP)
  Receive Date: 20150824
  Receipt Date: 20181130
  Transmission Date: 20190204
  Serious: Yes (Death, Life-Threatening, Hospitalization)
  Sender: FDA-Public Use
  Company Number: JP-ACTELION-A-CH2015-122891

PATIENT
  Age: 9 Year
  Sex: Female

DRUGS (9)
  1. TRACLEER [Suspect]
     Active Substance: BOSENTAN
     Indication: PULMONARY ARTERIAL HYPERTENSION
     Dosage: UNK
     Route: 048
     Dates: end: 20150727
  2. PROCYLIN [Concomitant]
     Active Substance: BERAPROST SODIUM
  3. FLOLAN [Concomitant]
     Active Substance: EPOPROSTENOL SODIUM
     Indication: PULMONARY ARTERIAL HYPERTENSION
     Route: 042
  4. ADCIRCA [Concomitant]
     Active Substance: TADALAFIL
  5. OPSUMIT [Suspect]
     Active Substance: MACITENTAN
     Indication: PULMONARY ARTERIAL HYPERTENSION
     Dosage: 4 MG, QD
     Route: 048
     Dates: start: 20150728, end: 20150814
  6. REVATIO [Concomitant]
     Active Substance: SILDENAFIL CITRATE
  7. LASIX [Concomitant]
     Active Substance: FUROSEMIDE
  8. OXYGEN. [Concomitant]
     Active Substance: OXYGEN
  9. NITRIC OXIDE. [Concomitant]
     Active Substance: NITRIC OXIDE

REACTIONS (8)
  - Pulmonary arterial hypertension [Fatal]
  - Renal impairment [Not Recovered/Not Resolved]
  - Hyperbilirubinaemia [Not Recovered/Not Resolved]
  - Renal failure [Fatal]
  - Hepatic function abnormal [Not Recovered/Not Resolved]
  - Condition aggravated [Fatal]
  - Blood urea increased [Fatal]
  - Disease progression [Unknown]

NARRATIVE: CASE EVENT DATE: 201507
